FAERS Safety Report 7950841-9 (Version None)
Quarter: 2011Q4

REPORT INFORMATION
  Report Type: 
  Country: None (occurrence: None)
  Receive Date: 20111201
  Receipt Date: 20111128
  Transmission Date: 20120403
  Serious: Yes (Hospitalization, Other)
  Sender: FDA-Public Use
  Company Number: US-JNJFOC-20111008395

PATIENT
  Age: 53 Year
  Sex: Female

DRUGS (13)
  1. FENTANYL [Suspect]
     Indication: PAIN
     Route: 062
  2. FENTANYL [Suspect]
     Route: 062
  3. HYDROMORPHONE HCL [Suspect]
     Route: 042
  4. MORPHINE [Suspect]
     Indication: PAIN
     Route: 048
  5. MS CONTIN [Suspect]
     Route: 048
  6. MORPHINE [Suspect]
     Route: 048
  7. FENTANYL [Suspect]
     Route: 062
  8. FENTANYL [Suspect]
     Route: 062
  9. METHADONE HYDROCHLORIDE [Suspect]
     Indication: PAIN
     Route: 048
  10. MS CONTIN [Suspect]
     Indication: PAIN
     Route: 048
  11. METHADONE HYDROCHLORIDE [Suspect]
     Route: 048
  12. HYDROMORPHONE HCL [Suspect]
     Indication: PAIN
     Route: 042
  13. HYDROMORPHONE HCL [Suspect]
     Route: 042

REACTIONS (5)
  - DRUG EFFECT DECREASED [None]
  - MYOCLONUS [None]
  - NEUROTOXICITY [None]
  - CONFUSIONAL STATE [None]
  - SEDATION [None]
